FAERS Safety Report 4655415-3 (Version None)
Quarter: 2005Q2

REPORT INFORMATION
  Report Type: 
  Country: None (occurrence: None)
  Receive Date: 20050506
  Receipt Date: 20050429
  Transmission Date: 20051028
  Serious: Yes (Hospitalization)
  Sender: FDA-Public Use
  Company Number: BE-ABBOTT-05P-013-0298986-00

PATIENT
  Sex: Male

DRUGS (6)
  1. HUMIRA [Suspect]
     Indication: RHEUMATOID ARTHRITIS
     Route: 058
     Dates: start: 20040624, end: 20050426
  2. METHOTREXATE [Concomitant]
     Indication: DRUG USE FOR UNKNOWN INDICATION
     Dates: start: 20040514
  3. METHYLPREDNISOLONE [Concomitant]
     Indication: DRUG USE FOR UNKNOWN INDICATION
     Dates: start: 20050201
  4. ANEOXIA [Concomitant]
     Indication: DRUG USE FOR UNKNOWN INDICATION
     Dates: start: 20040514
  5. ESOMEPRAZOLE [Concomitant]
     Indication: OESOPHAGITIS
     Dates: start: 20010101
  6. FOLIC ACID [Concomitant]
     Indication: PROPHYLAXIS
     Dates: start: 20040514

REACTIONS (1)
  - ENTEROCOLITIS INFECTIOUS [None]
